FAERS Safety Report 8579996-2 (Version None)
Quarter: 2012Q3

REPORT INFORMATION
  Report Type: 
  Country: None (occurrence: None)
  Receive Date: 20120808
  Receipt Date: 20120731
  Transmission Date: 20120928
  Serious: Yes (Hospitalization)
  Sender: FDA-Public Use
  Company Number: FR-JNJFOC-20120803060

PATIENT
  Sex: Female
  Weight: 66 kg

DRUGS (2)
  1. XARELTO [Suspect]
     Indication: ORTHOPEDIC PROCEDURE
     Route: 048
     Dates: start: 20111116, end: 20111125
  2. XARELTO [Suspect]
     Indication: THROMBOSIS PROPHYLAXIS
     Route: 048
     Dates: start: 20111116, end: 20111125

REACTIONS (3)
  - DEEP VEIN THROMBOSIS [None]
  - PULMONARY EMBOLISM [None]
  - DRUG INEFFECTIVE [None]
